FAERS Safety Report 10214618 (Version 3)
Quarter: 2014Q3

REPORT INFORMATION
  Report Type: Spontaneous
  Country: CN (occurrence: CN)
  Receive Date: 20140603
  Receipt Date: 20140701
  Transmission Date: 20150326
  Serious: Yes (Hospitalization)
  Sender: FDA-Public Use
  Company Number: CN-GLAXOSMITHKLINE-B0999286A

PATIENT
  Age: 10 Year
  Sex: Male
  Weight: 10 kg

DRUGS (3)
  1. SERETIDE [Suspect]
     Active Substance: FLUTICASONE FUROATE\SALMETEROL XINAFOATE
     Indication: ASTHMA
     Dosage: 1PUFF PER DAY
     Route: 055
     Dates: start: 20140525, end: 20140527
  2. AZITHROMYCIN [Suspect]
     Active Substance: AZITHROMYCIN ANHYDROUS
     Indication: COUGH
     Route: 065
     Dates: start: 20140525, end: 20140526
  3. PENICILLIN [Suspect]
     Active Substance: PENICILLIN
     Indication: COUGH
     Route: 065
     Dates: start: 20140525, end: 20140526

REACTIONS (4)
  - Pruritus [Unknown]
  - Rash erythematous [Recovering/Resolving]
  - Hypersensitivity [Unknown]
  - Urticaria [Unknown]

NARRATIVE: CASE EVENT DATE: 20140526
